FAERS Safety Report 9475854 (Version 2)
Quarter: 2013Q3

REPORT INFORMATION
  Report Type: Spontaneous
  Country: CN (occurrence: CN)
  Receive Date: 20130826
  Receipt Date: 20130903
  Transmission Date: 20140515
  Serious: Yes (Other)
  Sender: FDA-Public Use
  Company Number: CN-JNJFOC-20130813070

PATIENT
  Age: 15 Year
  Sex: Male
  Weight: 42 kg

DRUGS (2)
  1. REMICADE [Suspect]
     Indication: COLITIS ULCERATIVE
     Dosage: THIRD TIME
     Route: 042
     Dates: start: 20130801, end: 20130801
  2. REMICADE [Suspect]
     Indication: COLITIS ULCERATIVE
     Dosage: THE PATIENT RECEIVED TOTALLY 200 MG+200MG+15ML
     Route: 042
     Dates: start: 20130608

REACTIONS (2)
  - Anaphylactic shock [Recovered/Resolved]
  - Infusion related reaction [Recovered/Resolved]
